FAERS Safety Report 23957588 (Version 1)
Quarter: 2024Q2

REPORT INFORMATION
  Report Type: Spontaneous
  Country: US (occurrence: US)
  Receive Date: 20240610
  Receipt Date: 20240610
  Transmission Date: 20240715
  Serious: No
  Sender: FDA-Public Use
  Company Number: US-BRISTOL-MYERS SQUIBB COMPANY-2024-093276

PATIENT
  Age: 53 Year
  Sex: Female
  Weight: 75.75 kg

DRUGS (1)
  1. REVLIMID [Suspect]
     Active Substance: LENALIDOMIDE
     Indication: Plasma cell myeloma
     Dosage: DOSE : 15 MG;     FREQ : 15 MG CAPSULE PO 14 DAYS ON 14 DAYS OFF
     Route: 048
     Dates: start: 202109

REACTIONS (2)
  - Laboratory test abnormal [Unknown]
  - Off label use [Unknown]
